FAERS Safety Report 8027397-8 (Version None)
Quarter: 2012Q1

REPORT INFORMATION
  Report Type: 
  Country: None (occurrence: None)
  Receive Date: 20120105
  Receipt Date: 20120105
  Transmission Date: 20120608
  Serious: Yes (Death, Hospitalization)
  Sender: FDA-Public Use
  Company Number: None

PATIENT
  Sex: Male
  Weight: 48.7 kg

DRUGS (16)
  1. MS CONTIN [Suspect]
  2. PRINCESS MARGARET HOSP. MOUTHWASH [Concomitant]
  3. SENOKOT [Concomitant]
  4. BETAMETHASONE [Concomitant]
  5. BEVACIZUMAB (RHUMAB VEGF) [Suspect]
     Dosage: 224 MG
     Dates: end: 20111122
  6. LEUCOVORIN CALCIUM [Suspect]
     Dosage: 655 MG
  7. GRANISETRON [Concomitant]
  8. COLACE [Concomitant]
  9. GABEPENTIN [Concomitant]
  10. FLUOROURACIL [Suspect]
     Dosage: 3585 MG
     Dates: end: 20111122
  11. DECADRON [Concomitant]
  12. STEMETIL [Concomitant]
  13. IRINOTECAN HCL [Suspect]
     Dosage: 229 MG
     Dates: end: 20111122
  14. FENTANYL-100 [Concomitant]
  15. LACTULASE [Concomitant]
  16. SIMVASTATIN [Concomitant]

REACTIONS (4)
  - HYPOGLYCAEMIA [None]
  - LOSS OF CONSCIOUSNESS [None]
  - GENERAL PHYSICAL HEALTH DETERIORATION [None]
  - ABDOMINAL PAIN LOWER [None]
